FAERS Safety Report 8773230 (Version 1)
Quarter: 2012Q4

REPORT INFORMATION
  Report Type: 
  Country: SI (occurrence: SI)
  Receive Date: 20120907
  Receipt Date: 20120907
  Transmission Date: 20130627
  Serious: Yes (Hospitalization)
  Sender: FDA-Public Use
  Company Number: SI-ROCHE-1102013

PATIENT
  Age: 56 Year
  Sex: Female
  Weight: 65 kg

DRUGS (12)
  1. ROACTEMRA [Suspect]
     Indication: RHEUMATOID ARTHRITIS
     Route: 042
     Dates: start: 20090518
  2. ROACTEMRA [Suspect]
     Route: 042
     Dates: start: 20100915
  3. ROACTEMRA [Suspect]
     Route: 042
     Dates: start: 20111020
  4. ROACTEMRA [Suspect]
     Route: 042
     Dates: start: 20111117
  5. ROACTEMRA [Suspect]
     Route: 042
     Dates: start: 20111222
  6. ROACTEMRA [Suspect]
     Route: 042
     Dates: start: 20120524
  7. BONVIVA [Suspect]
     Indication: PRODUCT USED FOR UNKNOWN INDICATION
     Route: 065
  8. VITAMIN D3 [Concomitant]
     Route: 065
  9. ARCOXIA [Concomitant]
     Route: 065
  10. PRAVASTATIN [Concomitant]
     Route: 065
  11. FOLIC ACID [Concomitant]
     Route: 065
  12. METHOTREXAT [Concomitant]
     Route: 065

REACTIONS (1)
  - Peritonsillar abscess [Unknown]
